FAERS Safety Report 7287752-0 (Version None)
Quarter: 2011Q1

REPORT INFORMATION
  Report Type: 
  Country: None (occurrence: None)
  Receive Date: 20110211
  Receipt Date: 20110128
  Transmission Date: 20110831
  Serious: Yes (Death, Hospitalization, Other)
  Sender: FDA-Public Use
  Company Number: IT-BAYER-201041804GPV

PATIENT
  Sex: Male

DRUGS (9)
  1. NEXAVAR [Suspect]
     Indication: HEPATIC NEOPLASM MALIGNANT
     Route: 048
     Dates: start: 20100830, end: 20100921
  2. FENTANYL [Concomitant]
     Dosage: 1200 ?G (DAILY DOSE), , TRANSDERMAL
     Route: 062
  3. ENOXAPARIN SODIUM [Concomitant]
     Dosage: 6000 IU (DAILY DOSE), , SUBCUTANEOUS
     Route: 058
  4. APIDRA [Concomitant]
     Dosage: 32 IU (DAILY DOSE), , SUBCUTANEOUS
     Route: 058
  5. LANTUS [Concomitant]
     Dosage: 14 IU (DAILY DOSE), , SUBCUTANEOUS
     Route: 058
  6. FUROSEMIDE [Concomitant]
     Route: 048
  7. CANRENONE [Concomitant]
     Route: 048
  8. BISOPROLOL FUMARATE [Concomitant]
     Dosage: 5 MG (DAILY DOSE), , ORAL
     Route: 048
  9. PRELECTAL [Concomitant]
     Route: 048

REACTIONS (3)
  - HEPATIC ENCEPHALOPATHY [None]
  - HEPATITIS ACUTE [None]
  - OCULAR ICTERUS [None]
